FAERS Safety Report 25467253 (Version 2)
Quarter: 2025Q3

REPORT INFORMATION
  Report Type: Spontaneous
  Country: US (occurrence: US)
  Receive Date: 20250623
  Receipt Date: 20250704
  Transmission Date: 20251021
  Serious: No
  Sender: AMGEN
  Company Number: US-AMGEN-USASP2025120398

PATIENT
  Sex: Female

DRUGS (3)
  1. NPLATE [Suspect]
     Active Substance: ROMIPLOSTIM
     Indication: Immune thrombocytopenia
     Dosage: 500MGX1, 250MGX1,125MGX1 (777MG ), QWK
     Route: 065
     Dates: start: 20250415
  2. NPLATE [Suspect]
     Active Substance: ROMIPLOSTIM
     Dosage: 500MGX1, 250MGX1,125MGX1 (777MG ), QWK
     Route: 065
  3. NPLATE [Suspect]
     Active Substance: ROMIPLOSTIM
     Dosage: 500MGX1, 250MGX1,125MGX1 (777MG ), QWK
     Route: 065

REACTIONS (1)
  - Maternal exposure during pregnancy [Unknown]
